FAERS Safety Report 15274397 (Version 1)
Quarter: 2018Q3

REPORT INFORMATION
  Report Type: Spontaneous
  Country: US (occurrence: US)
  Receive Date: 20180814
  Receipt Date: 20180814
  Transmission Date: 20181010
  Serious: Yes (Death)
  Sender: FDA-Public Use
  Company Number: US-ROCHE-2168510

PATIENT
  Age: 45 Year
  Sex: Female

DRUGS (1)
  1. XELODA [Suspect]
     Active Substance: CAPECITABINE
     Indication: BREAST CANCER FEMALE
     Dosage: DOSE: 3 TABLETS TWICE A DAY
     Route: 048
     Dates: start: 20180518, end: 20180614

REACTIONS (1)
  - Death [Fatal]

NARRATIVE: CASE EVENT DATE: 20180630
